FAERS Safety Report 7278251-0 (Version None)
Quarter: 2011Q1

REPORT INFORMATION
  Report Type: 
  Country: None (occurrence: None)
  Receive Date: 20110207
  Receipt Date: 20110131
  Transmission Date: 20110831
  Serious: Yes (Death, Other)
  Sender: FDA-Public Use
  Company Number: US-ACTELION-A-US2011-44498

PATIENT

DRUGS (3)
  1. TRACLEER [Suspect]
     Indication: PULMONARY ARTERIAL HYPERTENSION
     Dosage: UNK
     Route: 048
     Dates: start: 20090602, end: 20110129
  2. VELETRI [Suspect]
     Indication: PULMONARY ARTERIAL HYPERTENSION
     Dosage: 22 NG/KG, PER MIN
     Route: 042
     Dates: start: 20100812, end: 20110129
  3. SILDENAFIL [Concomitant]

REACTIONS (4)
  - CARDIAC ARREST [None]
  - SWOLLEN TONGUE [None]
  - LOSS OF CONSCIOUSNESS [None]
  - HYPOAESTHESIA [None]
